FAERS Safety Report 7724093-9 (Version None)
Quarter: 2011Q3

REPORT INFORMATION
  Report Type: 
  Country: None (occurrence: None)
  Receive Date: 20110901
  Receipt Date: 20110715
  Transmission Date: 20111222
  Serious: Yes (Other)
  Sender: FDA-Public Use
  Company Number: PHHY2011JP69711

PATIENT
  Age: 64 Year
  Sex: Male

DRUGS (1)
  1. NATEGLINIDE [Suspect]
     Route: 048

REACTIONS (3)
  - ABDOMINAL DISTENSION [None]
  - FLATULENCE [None]
  - BLOOD PRESSURE SYSTOLIC INCREASED [None]
